FAERS Safety Report 9729329 (Version 1)
Quarter: 2013Q4

REPORT INFORMATION
  Report Type: Spontaneous
  Country: US (occurrence: US)
  Receive Date: 20131204
  Receipt Date: 20131204
  Transmission Date: 20140711
  Serious: Yes (Other)
  Sender: FDA-Public Use
  Company Number: US-GLENMARK GENERICS INC.-2013GMK007714

PATIENT
  Age: 40 Year
  Sex: Female

DRUGS (2)
  1. GABAPENTIN [Suspect]
     Indication: PAIN
     Dosage: UNK
  2. TRAZODONE [Suspect]
     Indication: PRODUCT USED FOR UNKNOWN INDICATION
     Dosage: 50 MG, QD

REACTIONS (5)
  - Chronic hepatitis [Recovered/Resolved]
  - Jaundice [Recovered/Resolved]
  - Hepatic necrosis [Recovered/Resolved]
  - Hepatic fibrosis [Recovered/Resolved]
  - Drug-induced liver injury [Recovered/Resolved]
